FAERS Safety Report 8611108-9 (Version None)
Quarter: 2012Q3

REPORT INFORMATION
  Report Type: 
  Country: None (occurrence: None)
  Receive Date: 20120822
  Receipt Date: 20120813
  Transmission Date: 20120928
  Serious: Yes (Other)
  Sender: FDA-Public Use
  Company Number: CN-ASTRAZENECA-2012SE58021

PATIENT
  Age: 23045 Day
  Sex: Male

DRUGS (2)
  1. METOPROLOL SUCCINATE [Suspect]
     Route: 048
     Dates: start: 20090917
  2. METOPROLOL SUCCINATE [Suspect]
     Indication: THERAPEUTIC PROCEDURE
     Route: 048
     Dates: start: 20090907, end: 20090917

REACTIONS (1)
  - HYPOGLYCAEMIA [None]
